FAERS Safety Report 14583544 (Version 3)
Quarter: 2018Q1

REPORT INFORMATION
  Report Type: Report from Study
  Country: CA (occurrence: CA)
  Receive Date: 20180228
  Receipt Date: 20180309
  Transmission Date: 20180509
  Serious: Yes (Hospitalization)
  Sender: FDA-Public Use
  Company Number: CA-PFIZER INC-2018075310

PATIENT
  Age: 67 Year
  Sex: Male
  Weight: 80.2 kg

DRUGS (10)
  1. HYDROCHLOROTHIAZIDE. [Concomitant]
     Active Substance: HYDROCHLOROTHIAZIDE
     Dosage: 12.5 MG, UNK
     Dates: start: 20180125
  2. HYDROMORPH [Concomitant]
     Active Substance: HYDROMORPHONE
     Dosage: 1 MG, UNK
     Dates: start: 201706, end: 20180208
  3. MAVIK [Concomitant]
     Active Substance: TRANDOLAPRIL
     Dosage: 1 MG, UNK
     Dates: start: 20180209
  4. BENADRYL [Concomitant]
     Active Substance: DIPHENHYDRAMINE HYDROCHLORIDE
     Dosage: 100 MG, UNK
     Dates: start: 20180202, end: 20180203
  5. MAVIK [Concomitant]
     Active Substance: TRANDOLAPRIL
     Dosage: 2 MG, UNK
     Dates: start: 20180202, end: 20180208
  6. AMLODIPINE [Concomitant]
     Active Substance: AMLODIPINE BESYLATE
     Dosage: 10 MG, UNK
     Dates: start: 20171229
  7. SUNITINIB MALATE. [Suspect]
     Active Substance: SUNITINIB MALATE
     Indication: RENAL CELL CARCINOMA
     Dosage: 50 MG, DAILY (QD FOR 4 WEEKS AND THEN OFF TREATMENT FOR 2 WEEKS) (CYCLE 1)
     Route: 048
     Dates: start: 20180111, end: 20180207
  8. ASAPHEN [Concomitant]
     Active Substance: ASPIRIN
     Dosage: 80 MG, UNK
     Dates: start: 20010401
  9. MAVIK [Concomitant]
     Active Substance: TRANDOLAPRIL
     Dosage: 1 MG, UNK
     Dates: start: 20171228, end: 20180201
  10. BETADERM [Concomitant]
     Active Substance: BETAMETHASONE VALERATE
     Dosage: 0.1 %, UNK
     Dates: start: 20180202

REACTIONS (4)
  - Diarrhoea [Recovered/Resolved]
  - Vomiting [Recovered/Resolved]
  - Vertigo [Recovered/Resolved]
  - Labyrinthitis [Recovered/Resolved]

NARRATIVE: CASE EVENT DATE: 20180215
